FAERS Safety Report 7454003-3 (Version None)
Quarter: 2011Q2

REPORT INFORMATION
  Report Type: 
  Country: None (occurrence: None)
  Receive Date: 20110502
  Receipt Date: 20110425
  Transmission Date: 20111010
  Serious: Yes (Hospitalization, Other)
  Sender: FDA-Public Use
  Company Number: US-ROCHE-774028

PATIENT
  Sex: Female

DRUGS (2)
  1. XELODA [Suspect]
     Route: 065
  2. TYKERB [Suspect]
     Indication: BREAST CANCER
     Route: 048
     Dates: start: 20110305

REACTIONS (13)
  - BLOOD SODIUM DECREASED [None]
  - ANXIETY [None]
  - MYALGIA [None]
  - NAUSEA [None]
  - RETCHING [None]
  - WHEELCHAIR USER [None]
  - WALKING AID USER [None]
  - VISUAL ACUITY REDUCED [None]
  - DIARRHOEA [None]
  - VOMITING [None]
  - MUSCLE SPASMS [None]
  - ORAL DISCOMFORT [None]
  - ARTHRALGIA [None]
